FAERS Safety Report 8102533 (Version 11)
Quarter: 2013Q1

REPORT INFORMATION
  Report Type: Report from Study
  Country: US (occurrence: US)
  Receive Date: 20110823
  Receipt Date: 20130122
  Transmission Date: 20140127
  Serious: Yes (Other)
  Sender: FDA-Public Use
  Company Number: US-GENZYME-CAMP-1001840

PATIENT
  Age: 31 Year
  Sex: Female
  Weight: 68.03 kg

DRUGS (13)
  1. ALEMTUZUMAB [Suspect]
     Indication: MULTIPLE SCLEROSIS
     Dosage: 24 MG, QD
     Route: 042
     Dates: start: 20100414, end: 20100416
  2. ALEMTUZUMAB [Suspect]
     Dosage: 24 MG, QD
     Route: 042
     Dates: start: 20090330, end: 20090403
  3. METHYLPREDNISOLONE [Concomitant]
     Indication: MULTIPLE SCLEROSIS
     Dosage: 1.0 G, QD
     Route: 042
     Dates: start: 20090330, end: 20090401
  4. METHYLPREDNISOLONE [Concomitant]
     Indication: MULTIPLE SCLEROSIS
     Dosage: 1.0 G, QD
     Route: 042
     Dates: start: 20100414, end: 20100416
  5. BENADRYL [Concomitant]
     Indication: PROPHYLAXIS
     Dosage: 12.5 MG, EVERY 21 DAYS PRIOR TO CHEMO
     Route: 042
     Dates: end: 20111222
  6. DECADRON [Concomitant]
     Indication: PROPHYLAXIS
     Dosage: 8 MG DAY BEFORE, DAY OF AND DAY AFTER CHEMO
     Route: 048
     Dates: start: 20110907, end: 20111222
  7. DECADRON [Concomitant]
     Indication: PROPHYLAXIS
     Dosage: 10 MG, EVERY 21 DAYS PRIOR TO CHEMO
     Route: 042
     Dates: end: 20111222
  8. ALOXI [Concomitant]
     Indication: PROPHYLAXIS
     Dosage: 25 MG, EVERY 21 DAYS PRIOR TO CHEMO
     Route: 042
     Dates: end: 20111222
  9. PEPCID [Concomitant]
     Indication: PROPHYLAXIS
     Dosage: 20 MG, EVERY 21 DAYS PRIOR TO CHEMO
     Route: 042
     Dates: end: 20111222
  10. NEUPOGEN [Concomitant]
     Indication: WHITE BLOOD CELL COUNT DECREASED
     Dosage: 300 MCG, ONCE
     Route: 030
     Dates: start: 20110915, end: 20110915
  11. NEUPOGEN [Concomitant]
     Indication: NEUTROPHIL COUNT DECREASED
  12. VITAMIN D [Concomitant]
     Indication: PROPHYLAXIS
     Dosage: 5000 U, QD
     Route: 048
     Dates: start: 20110705
  13. ZOLADEX [Concomitant]
     Indication: PRODUCT USED FOR UNKNOWN INDICATION
     Dosage: UNK
     Dates: start: 20120518

REACTIONS (1)
  - Breast cancer [Recovered/Resolved]
